FAERS Safety Report 23223823 (Version 1)
Quarter: 2023Q4

REPORT INFORMATION
  Report Type: Spontaneous
  Country: US (occurrence: US)
  Receive Date: 20231124
  Receipt Date: 20231124
  Transmission Date: 20240110
  Serious: No
  Sender: FDA-Public Use
  Company Number: US-CIPLA LTD.-2023US05660

PATIENT

DRUGS (3)
  1. GABAPENTIN [Suspect]
     Active Substance: GABAPENTIN
     Indication: Arthralgia
     Dosage: 100 MILLIGRAM, QD
     Route: 048
     Dates: start: 20230908, end: 20230913
  2. CLONAZEPAM [Concomitant]
     Active Substance: CLONAZEPAM
     Indication: Affective disorder
     Dosage: 1.5 MILLIGRAM, BID (1 TABLET AT NIGHT AND HALF TABLET IN AFTERNOON)
     Route: 065
     Dates: start: 2007
  3. CLONAZEPAM [Concomitant]
     Active Substance: CLONAZEPAM
     Indication: Tremor

REACTIONS (2)
  - Nightmare [Recovered/Resolved]
  - Off label use [Unknown]

NARRATIVE: CASE EVENT DATE: 20230908
